FAERS Safety Report 8758437 (Version 2)
Quarter: 2012Q4

REPORT INFORMATION
  Report Type: 
  Country: BE (occurrence: BE)
  Receive Date: 20120823
  Receipt Date: 20121025
  Transmission Date: 20130627
  Serious: Yes (Hospitalization)
  Sender: FDA-Public Use
  Company Number: BE-ELI_LILLY_AND_COMPANY-BE201208004206

PATIENT
  Age: 59 Year
  Sex: Male

DRUGS (6)
  1. FORSTEO [Suspect]
     Indication: OSTEOPOROSIS
     Dosage: 20 ug, unknown
     Dates: start: 20120717
  2. SEVIKAR [Concomitant]
  3. NEBIVOLOL [Concomitant]
  4. NEXIAM [Concomitant]
  5. SIFROL [Concomitant]
  6. CALCIUM +VIT D [Concomitant]

REACTIONS (5)
  - Thrombosis [Unknown]
  - Hypoaesthesia [Not Recovered/Not Resolved]
  - Eye pruritus [Unknown]
  - Eye irritation [Recovered/Resolved]
  - Asthenia [Unknown]
